FAERS Safety Report 5229656-0 (Version None)
Quarter: 2007Q1

REPORT INFORMATION
  Report Type: 
  Country: None (occurrence: None)
  Receive Date: 20070206
  Receipt Date: 20070126
  Transmission Date: 20070707
  Serious: Yes (Hospitalization)
  Sender: FDA-Public Use
  Company Number: PHNU2006DE03177

PATIENT
  Age: 68 Year
  Sex: Female
  Weight: 70 kg

DRUGS (6)
  1. DIOVAN [Suspect]
     Indication: HYPERTENSION
     Dosage: 160 MG, QD
     Route: 048
     Dates: start: 20030301, end: 20061101
  2. TORSEMIDE [Concomitant]
     Indication: HYPERTENSION
     Dosage: 5 MG/D
     Route: 048
     Dates: start: 20030901
  3. BELOC-ZOK [Concomitant]
     Indication: HYPERTENSION
     Dosage: 95 MG/D
     Dates: start: 20051201
  4. LEVOTHYROXINE SODIUM [Concomitant]
  5. HORMONES [Concomitant]
  6. PANZYTRAT [Concomitant]
     Indication: PANCREATIC INSUFFICIENCY
     Dates: start: 20020101

REACTIONS (4)
  - LOCAL SWELLING [None]
  - OEDEMA [None]
  - RADIOACTIVE IODINE THERAPY [None]
  - SARCOIDOSIS [None]
